FAERS Safety Report 7682305-4 (Version None)
Quarter: 2011Q3

REPORT INFORMATION
  Report Type: 
  Country: None (occurrence: None)
  Receive Date: 20110810
  Receipt Date: 20110708
  Transmission Date: 20111222
  Serious: Yes (Other)
  Sender: FDA-Public Use
  Company Number: 2011-2355

PATIENT
  Age: 58 Year
  Sex: Female

DRUGS (1)
  1. LANREOTIDE AUTOGEL (LANREOTIDE) (LANREOTIDE ACETATE) [Suspect]
     Indication: POLYCYSTIC LIVER DISEASE
     Dosage: 90 MG (90 MG,1 IN 4 WK), PARENTERAL
     Route: 051
     Dates: start: 20110510

REACTIONS (3)
  - INJECTION SITE SWELLING [None]
  - INJECTION SITE ERYTHEMA [None]
  - RASH MACULO-PAPULAR [None]
